FAERS Safety Report 18538202 (Version 1)
Quarter: 2020Q4

REPORT INFORMATION
  Report Type: Spontaneous
  Country: DE (occurrence: DE)
  Receive Date: 20201124
  Receipt Date: 20201124
  Transmission Date: 20210114
  Serious: Yes (Other)
  Sender: FDA-Public Use
  Company Number: DE-SA-2020SA335087

PATIENT

DRUGS (1)
  1. DUPIXENT [Suspect]
     Active Substance: DUPILUMAB
     Indication: NEURODERMATITIS
     Dosage: 200 MG, QOW
     Route: 058

REACTIONS (1)
  - Testicular necrosis [Recovered/Resolved]

NARRATIVE: CASE EVENT DATE: 20200428
